FAERS Safety Report 14938887 (Version 1)
Quarter: 2018Q2

REPORT INFORMATION
  Report Type: Spontaneous
  Country: JP (occurrence: JP)
  Receive Date: 20180525
  Receipt Date: 20180525
  Transmission Date: 20180711
  Serious: Yes (Death, Hospitalization)
  Sender: FDA-Public Use
  Company Number: PHBS1997JP01398

PATIENT
  Age: 50 Year
  Sex: Female

DRUGS (9)
  1. SANDIMMUN [Suspect]
     Active Substance: CYCLOSPORINE
     Dosage: UNK
     Route: 065
     Dates: start: 19970329, end: 19970330
  2. SANDIMMUN [Suspect]
     Active Substance: CYCLOSPORINE
     Dosage: UNK
     Route: 065
     Dates: start: 19970331, end: 19970403
  3. SANDIMMUN [Suspect]
     Active Substance: CYCLOSPORINE
     Indication: BONE MARROW TRANSPLANT
     Dosage: UNK
     Route: 042
     Dates: start: 19970306, end: 19970403
  4. CYCLOPHOSPHAMIDE. [Suspect]
     Active Substance: CYCLOPHOSPHAMIDE
     Indication: BONE MARROW TRANSPLANT
     Dosage: 2800 MG, UNK
     Route: 065
     Dates: start: 19970307, end: 19970308
  5. SANDIMMUN [Suspect]
     Active Substance: CYCLOSPORINE
     Dosage: UNK
     Route: 065
     Dates: start: 19970306, end: 19970311
  6. STEROID [Concomitant]
     Active Substance: UNSPECIFIED INGREDIENT
     Indication: PRODUCT USED FOR UNKNOWN INDICATION
     Route: 065
  7. BUSULFUN [Suspect]
     Active Substance: BUSULFAN
     Indication: BONE MARROW TRANSPLANT
     Dosage: 180 MG, UNK
     Route: 065
     Dates: start: 19970307, end: 19970310
  8. STEROID (CORTICOSTEROIDS) [Concomitant]
     Indication: PRODUCT USED FOR UNKNOWN INDICATION
     Dosage: UNK
     Route: 065
  9. SANDIMMUN [Suspect]
     Active Substance: CYCLOSPORINE
     Dosage: UNK
     Route: 065
     Dates: start: 19970312, end: 19970328

REACTIONS (5)
  - Blood urea increased [None]
  - Multiple organ dysfunction syndrome [Fatal]
  - Graft versus host disease [Unknown]
  - Haemolytic uraemic syndrome [Not Recovered/Not Resolved]
  - Blood bilirubin increased [None]

NARRATIVE: CASE EVENT DATE: 19970324
